FAERS Safety Report 8193377-5 (Version None)
Quarter: 2012Q1

REPORT INFORMATION
  Report Type: 
  Country: None (occurrence: None)
  Receive Date: 20120308
  Receipt Date: 20120301
  Transmission Date: 20120608
  Serious: Yes (Hospitalization, Other)
  Sender: FDA-Public Use
  Company Number: US-AMGEN-USASP2011018136

PATIENT
  Sex: Female
  Weight: 73.48 kg

DRUGS (3)
  1. AVELOX [Concomitant]
     Dosage: UNK
     Route: 048
     Dates: start: 20111225, end: 20120104
  2. PROLIA [Suspect]
     Indication: OSTEOPOROSIS POSTMENOPAUSAL
     Dosage: 60 MG, Q6MO
     Route: 058
     Dates: start: 20101213
  3. CIPRO [Concomitant]
     Dosage: UNK
     Route: 042
     Dates: start: 20110203, end: 20110208

REACTIONS (4)
  - TENDONITIS [None]
  - DIVERTICULITIS [None]
  - MYOSITIS [None]
  - RESPIRATORY TRACT INFECTION [None]
